FAERS Safety Report 6126502-8 (Version None)
Quarter: 2009Q1

REPORT INFORMATION
  Report Type: 
  Country: None (occurrence: None)
  Receive Date: 20090320
  Receipt Date: 20090309
  Transmission Date: 20090719
  Serious: Yes (Disabling, Other)
  Sender: FDA-Public Use
  Company Number: US-PFIZER INC-2009181187

PATIENT
  Sex: Female

DRUGS (3)
  1. CHANTIX [Suspect]
  2. XANAX [Suspect]
     Indication: PSYCHIATRIC SYMPTOM
  3. XANAX [Suspect]
     Indication: ANXIETY

REACTIONS (6)
  - APNOEIC ATTACK [None]
  - CHRONIC OBSTRUCTIVE PULMONARY DISEASE [None]
  - DYSPNOEA [None]
  - FATIGUE [None]
  - ILL-DEFINED DISORDER [None]
  - SUICIDAL IDEATION [None]
